FAERS Safety Report 9548750 (Version 1)
Quarter: 2013Q3

REPORT INFORMATION
  Report Type: Spontaneous
  Country: US (occurrence: None)
  Receive Date: 20130923
  Receipt Date: 20130923
  Transmission Date: 20140515
  Serious: Yes (Disabling)
  Sender: FDA-Public Use
  Company Number: None

PATIENT
  Age: 58 Year
  Sex: Female
  Weight: 113.85 kg

DRUGS (2)
  1. ZETONNA [Suspect]
     Indication: HYPERSENSITIVITY
     Dosage: 1 PUFF IN EAC NOSTRIL; ONCE DAILY
     Route: 055
     Dates: start: 20130710, end: 20130809
  2. ZETONNA [Suspect]
     Indication: SINUSITIS
     Dosage: 1 PUFF IN EAC NOSTRIL; ONCE DAILY
     Route: 055
     Dates: start: 20130710, end: 20130809

REACTIONS (2)
  - Anosmia [None]
  - Dysgeusia [None]
